FAERS Safety Report 6106136-1 (Version None)
Quarter: 2009Q1

REPORT INFORMATION
  Report Type: 
  Country: None (occurrence: None)
  Receive Date: 20090306
  Receipt Date: 20090220
  Transmission Date: 20090719
  Serious: Yes (Hospitalization)
  Sender: FDA-Public Use
  Company Number: CH-PFIZER INC-2009174270

PATIENT

DRUGS (2)
  1. SERTRALINE HCL [Suspect]
     Dosage: 50 MG
  2. ALPRAZOLAM [Concomitant]
     Indication: ANXIOLYTIC THERAPY
     Dosage: 0.5 MG, UNK

REACTIONS (4)
  - CATATONIA [None]
  - DEPRESSION [None]
  - DRUG INEFFECTIVE [None]
  - SUICIDAL IDEATION [None]
